FAERS Safety Report 9477053 (Version 2)
Quarter: 2014Q1

REPORT INFORMATION
  Report Type: Spontaneous
  Country: US (occurrence: US)
  Receive Date: 20130826
  Receipt Date: 20140103
  Transmission Date: 20141002
  Serious: Yes (Hospitalization, Other)
  Sender: FDA-Public Use
  Company Number: US-BAYER-2013-102562

PATIENT
  Age: 34 Year
  Sex: Female
  Weight: 66.21 kg

DRUGS (3)
  1. YAZ [Suspect]
  2. OCELLA [Suspect]
  3. YASMIN [Suspect]

REACTIONS (6)
  - Deep vein thrombosis [None]
  - Intracranial venous sinus thrombosis [None]
  - Jugular vein thrombosis [None]
  - Injury [None]
  - Pain [None]
  - Pain [None]
